FAERS Safety Report 9219366 (Version 2)
Quarter: 2013Q2

REPORT INFORMATION
  Report Type: Spontaneous
  Country: US (occurrence: None)
  Receive Date: 20120827
  Receipt Date: 20130225
  Transmission Date: 20140414
  Serious: Yes (Other)
  Sender: FDA-Public Use
  Company Number: 356953

PATIENT
  Age: 67 Year
  Sex: Male
  Weight: 109.8 kg

DRUGS (5)
  1. VICTOZA [Suspect]
     Indication: PRODUCT USED FOR UNKNOWN INDICATION
     Route: 058
     Dates: start: 20100322, end: 201212
  2. VICTOZA [Suspect]
     Indication: DIABETES MELLITUS INADEQUATE CONTROL
     Route: 058
     Dates: start: 20100322, end: 201212
  3. GLYBURIDE (GLIBENCLAMIDE) [Concomitant]
  4. METFORMIN [Concomitant]
  5. TAMSULOSIN [Concomitant]

REACTIONS (1)
  - Pancreatitis [None]
